FAERS Safety Report 9096256 (Version 1)
Quarter: 2013Q1

REPORT INFORMATION
  Report Type: Spontaneous
  Country: FR (occurrence: FR)
  Receive Date: 20130207
  Receipt Date: 20130207
  Transmission Date: 20140127
  Serious: Yes (Hospitalization)
  Sender: FDA-Public Use
  Company Number: FR-ROCHE-1187951

PATIENT
  Age: 74 Year
  Sex: Female
  Weight: 51 kg

DRUGS (2)
  1. ZELBORAF [Suspect]
     Indication: METASTATIC MALIGNANT MELANOMA
     Route: 048
     Dates: start: 20120608, end: 20120823
  2. ZELBORAF [Suspect]
     Dosage: DOSAGE DECREASED
     Route: 048
     Dates: start: 20120824

REACTIONS (4)
  - Photosensitivity reaction [Recovered/Resolved]
  - Keratoacanthoma [Recovered/Resolved]
  - Arthralgia [Recovered/Resolved]
  - Vitreous floaters [Not Recovered/Not Resolved]
